FAERS Safety Report 4910976-1 (Version None)
Quarter: 2006Q1

REPORT INFORMATION
  Report Type: 
  Country: None (occurrence: None)
  Receive Date: 20060214
  Receipt Date: 20060106
  Transmission Date: 20060701
  Serious: Yes (Hospitalization, Disabling, Other)
  Sender: FDA-Public Use
  Company Number: US-MERCK-0601USA00828

PATIENT
  Age: 52 Year
  Sex: Female
  Weight: 132 kg

DRUGS (3)
  1. VIOXX [Suspect]
     Indication: PAIN
     Route: 048
     Dates: start: 20020101, end: 20040101
  2. VIOXX [Suspect]
     Indication: OEDEMA PERIPHERAL
     Route: 048
     Dates: start: 20020101, end: 20040101
  3. TYLENOL (CAPLET) [Concomitant]
     Route: 065

REACTIONS (9)
  - ARTHRITIS [None]
  - BACK PAIN [None]
  - CEREBROVASCULAR ACCIDENT [None]
  - DEPRESSION [None]
  - INTERVERTEBRAL DISC DEGENERATION [None]
  - JOINT SWELLING [None]
  - MITRAL VALVE PROLAPSE [None]
  - OEDEMA PERIPHERAL [None]
  - PAIN IN EXTREMITY [None]
